FAERS Safety Report 18004859 (Version 2)
Quarter: 2020Q3

REPORT INFORMATION
  Report Type: Spontaneous
  Country: US (occurrence: US)
  Receive Date: 20200710
  Receipt Date: 20200716
  Transmission Date: 20201103
  Serious: Yes (Life-Threatening, Hospitalization, Other)
  Sender: FDA-Public Use
  Company Number: US-EMCURE PHARMACEUTICALS LTD-2020-EPL-000877

PATIENT
  Age: 59 Year
  Sex: Male

DRUGS (12)
  1. QUETIAPINE. [Suspect]
     Active Substance: QUETIAPINE
     Dosage: UNK
     Route: 048
  2. ALLOPURINOL. [Suspect]
     Active Substance: ALLOPURINOL
     Route: 048
  3. VILAZODONE [Suspect]
     Active Substance: VILAZODONE
     Dosage: UNK
     Route: 048
  4. NAPROXEN. [Suspect]
     Active Substance: NAPROXEN
     Route: 048
  5. ALPRAZOLAM. [Suspect]
     Active Substance: ALPRAZOLAM
     Route: 048
  6. TRAZODONE [Suspect]
     Active Substance: TRAZODONE HYDROCHLORIDE
     Route: 048
  7. PRAVASTATIN. [Suspect]
     Active Substance: PRAVASTATIN
     Route: 048
  8. ARIPIPRAZOLE. [Suspect]
     Active Substance: ARIPIPRAZOLE
     Route: 048
  9. AMITRIPTYLINE [Suspect]
     Active Substance: AMITRIPTYLINE
     Dosage: UNK
     Route: 048
  10. COLCHICINE. [Suspect]
     Active Substance: COLCHICINE
     Route: 048
  11. FLUOXETINE [Suspect]
     Active Substance: FLUOXETINE HYDROCHLORIDE
     Route: 048
  12. IBUPROFEN. [Suspect]
     Active Substance: IBUPROFEN
     Route: 048

REACTIONS (3)
  - Toxicity to various agents [Recovered/Resolved]
  - Serotonin syndrome [Recovered/Resolved]
  - Overdose [Recovered/Resolved]
